FAERS Safety Report 15940805 (Version 1)
Quarter: 2019Q1

REPORT INFORMATION
  Report Type: Report from Study
  Country: TW (occurrence: TW)
  Receive Date: 20190208
  Receipt Date: 20190208
  Transmission Date: 20190417
  Serious: Yes (Other)
  Sender: FDA-Public Use
  Company Number: TW-ELI_LILLY_AND_COMPANY-TW201902001498

PATIENT
  Age: 38 Year
  Sex: Male
  Weight: 65 kg

DRUGS (6)
  1. CETUXIMAB. [Suspect]
     Active Substance: CETUXIMAB
     Indication: GINGIVAL CANCER
     Dosage: 250 MG/M2, WEEKLY (1/W)
     Route: 042
  2. VINCRISTINE [Concomitant]
     Active Substance: VINCRISTINE
     Indication: GINGIVAL CANCER
     Dosage: 1.8 MG, 2/M
  3. CISPLATIN. [Concomitant]
     Active Substance: CISPLATIN
     Indication: GINGIVAL CANCER
     Dosage: 54 MG, 2/M
  4. BLEOCIN [BLEOMYCIN] [Concomitant]
     Indication: GINGIVAL CANCER
     Dosage: 18 MG, 2/M
  5. FLUOROURACIL. [Concomitant]
     Active Substance: FLUOROURACIL
     Indication: GINGIVAL CANCER
     Dosage: 1800 MG, 2/M
  6. MITOMYCIN C [Concomitant]
     Active Substance: MITOMYCIN
     Indication: GINGIVAL CANCER
     Dosage: 7.1 MG, 2/M

REACTIONS (3)
  - Off label use [Unknown]
  - Body temperature increased [Not Recovered/Not Resolved]
  - White blood cell count decreased [Not Recovered/Not Resolved]

NARRATIVE: CASE EVENT DATE: 20190130
